FAERS Safety Report 5829695-2 (Version None)
Quarter: 2008Q3

REPORT INFORMATION
  Report Type: 
  Country: None (occurrence: None)
  Receive Date: 20080731
  Receipt Date: 20080731
  Transmission Date: 20090109
  Serious: Yes (Other)
  Sender: FDA-Public Use
  Company Number: None

PATIENT
  Sex: Female
  Weight: 54.4316 kg

DRUGS (1)
  1. BUPROPION HYDROCHLORIDE [Suspect]
     Indication: DEPRESSION
     Dosage: 150 MG 3 TABS PER DAY ORAL
     Route: 048
     Dates: start: 20080718, end: 20080721

REACTIONS (3)
  - ASTHENIA [None]
  - DEPRESSED MOOD [None]
  - PHARMACEUTICAL PRODUCT COMPLAINT [None]
